FAERS Safety Report 22072820 (Version 1)
Quarter: 2023Q1

REPORT INFORMATION
  Report Type: Spontaneous
  Country: US (occurrence: None)
  Receive Date: 20230308
  Receipt Date: 20230308
  Transmission Date: 20230418
  Serious: No
  Sender: FDA-Public Use
  Company Number: US-Merck Healthcare KGaA-9387085

PATIENT
  Sex: Female

DRUGS (3)
  1. GONAL-F [Suspect]
     Active Substance: FOLLITROPIN
     Indication: Product used for unknown indication
     Route: 058
     Dates: start: 202302
  2. GONAL-F [Suspect]
     Active Substance: FOLLITROPIN
     Route: 058
  3. LETROZOLE [Concomitant]
     Active Substance: LETROZOLE
     Indication: Product used for unknown indication
     Dates: start: 202211

REACTIONS (3)
  - Blood oestrogen abnormal [Unknown]
  - Therapeutic response decreased [Unknown]
  - Suspected product quality issue [Unknown]
